FAERS Safety Report 5138259-8 (Version None)
Quarter: 2006Q4

REPORT INFORMATION
  Report Type: 
  Country: None (occurrence: None)
  Receive Date: 20061030
  Receipt Date: 20060807
  Transmission Date: 20070319
  Serious: Yes (Other)
  Sender: FDA-Public Use
  Company Number: US-GLAXOSMITHKLINE-A0615592A

PATIENT
  Age: 60 Year
  Sex: Female

DRUGS (4)
  1. ADVAIR HFA [Suspect]
     Indication: ASTHMA
     Dosage: 1PUFF TWICE PER DAY
     Route: 055
  2. SPIRIVA [Concomitant]
  3. VALIUM [Concomitant]
  4. AZOPT [Concomitant]

REACTIONS (7)
  - CANDIDIASIS [None]
  - CATARACT [None]
  - CONTUSION [None]
  - GLAUCOMA [None]
  - INTRAOCULAR PRESSURE INCREASED [None]
  - PHARYNGOLARYNGEAL PAIN [None]
  - VULVOVAGINAL MYCOTIC INFECTION [None]
